FAERS Safety Report 10120035 (Version 1)
Quarter: 2014Q2

REPORT INFORMATION
  Report Type: Report from Study
  Country: CA (occurrence: CA)
  Receive Date: 20140426
  Receipt Date: 20140426
  Transmission Date: 20141212
  Serious: Yes (Death)
  Sender: FDA-Public Use
  Company Number: PHHY2014CA050573

PATIENT
  Sex: Male

DRUGS (1)
  1. ZOMETA [Suspect]
     Indication: COLON CANCER METASTATIC
     Dosage: 4 MG, EVERY 4 WEEKS
     Route: 042

REACTIONS (1)
  - Death [Fatal]
